FAERS Safety Report 18873978 (Version 1)
Quarter: 2021Q1

REPORT INFORMATION
  Report Type: Report from Study
  Country: None (occurrence: US)
  Receive Date: 20210210
  Receipt Date: 20210210
  Transmission Date: 20210420
  Serious: No
  Sender: FDA-Public Use
  Company Number: US-BIOVITRUM-2018US1242

PATIENT
  Sex: Female

DRUGS (1)
  1. ORFADIN [Suspect]
     Active Substance: NITISINONE
     Indication: TYROSINAEMIA
     Dosage: 3 QAM AND 2 QPM
     Route: 048
     Dates: start: 20170126

REACTIONS (3)
  - Abdominal pain upper [Unknown]
  - Intentional product use issue [Unknown]
  - Pain in extremity [Unknown]
